FAERS Safety Report 12268492 (Version 1)
Quarter: 2016Q2

REPORT INFORMATION
  Report Type: Spontaneous
  Country: US (occurrence: US)
  Receive Date: 20160414
  Receipt Date: 20160414
  Transmission Date: 20160815
  Serious: Yes (Hospitalization)
  Sender: FDA-Public Use
  Company Number: US-BIOGEN-2007BI025712

PATIENT
  Sex: Female

DRUGS (2)
  1. BACLOFEN. [Concomitant]
     Active Substance: BACLOFEN
     Indication: MUSCULOSKELETAL STIFFNESS
     Dosage: BEEN ON IT FOR 10 YEAS
     Route: 065
     Dates: start: 2006
  2. TYSABRI [Suspect]
     Active Substance: NATALIZUMAB
     Indication: MULTIPLE SCLEROSIS
     Dosage: INFUSED OVER ONE HOUR
     Route: 042
     Dates: start: 20070816, end: 20071214

REACTIONS (2)
  - Endometrial cancer stage I [Recovered/Resolved]
  - Ovarian cancer [Recovered/Resolved]

NARRATIVE: CASE EVENT DATE: 2007
